FAERS Safety Report 10079006 (Version 1)
Quarter: 2014Q2

REPORT INFORMATION
  Report Type: Spontaneous
  Country: GB (occurrence: GB)
  Receive Date: 20140415
  Receipt Date: 20140415
  Transmission Date: 20141212
  Serious: Yes (Other)
  Sender: FDA-Public Use
  Company Number: GB-JNJFOC-20140407148

PATIENT
  Age: 72 Year
  Sex: Female
  Weight: 70 kg

DRUGS (7)
  1. XARELTO [Suspect]
     Indication: PRODUCT USED FOR UNKNOWN INDICATION
     Route: 048
     Dates: start: 20140224
  2. BISOPROLOL [Concomitant]
     Route: 065
     Dates: start: 20131227, end: 20140320
  3. WARFARIN SODIUM [Concomitant]
     Route: 065
     Dates: start: 20140123, end: 20140220
  4. LANSOPRAZOLE [Concomitant]
     Route: 065
     Dates: start: 20131227, end: 20140320
  5. LIPITOR [Concomitant]
     Route: 065
     Dates: start: 20131227, end: 20140320
  6. BENDROFLUMETHIAZIDE [Concomitant]
     Route: 065
     Dates: start: 20140221, end: 20140321
  7. CAPSAICIN [Concomitant]
     Route: 065
     Dates: start: 20140220, end: 20140320

REACTIONS (1)
  - Headache [Recovering/Resolving]
